FAERS Safety Report 10402741 (Version 1)
Quarter: 2014Q3

REPORT INFORMATION
  Report Type: Spontaneous
  Country: US (occurrence: None)
  Receive Date: 20140821
  Receipt Date: 20140821
  Transmission Date: 20150326
  Serious: No
  Sender: FDA-Public Use
  Company Number: None

PATIENT
  Age: 07 Year
  Sex: Female
  Weight: 48.44 kg

DRUGS (1)
  1. KAPVAY [Suspect]
     Active Substance: CLONIDINE HYDROCHLORIDE
     Indication: ATTENTION DEFICIT/HYPERACTIVITY DISORDER

REACTIONS (8)
  - Product substitution issue [None]
  - Frustration [None]
  - Irritability [None]
  - Poor quality sleep [None]
  - Educational problem [None]
  - Psychomotor hyperactivity [None]
  - Hyperphagia [None]
  - Treatment failure [None]
